FAERS Safety Report 20594443 (Version 1)
Quarter: 2022Q1

REPORT INFORMATION
  Report Type: Spontaneous
  Country: DK (occurrence: DK)
  Receive Date: 20220315
  Receipt Date: 20220315
  Transmission Date: 20220423
  Serious: Yes (Other)
  Sender: FDA-Public Use
  Company Number: None

PATIENT
  Age: 45 Year
  Sex: Male
  Weight: 100 kg

DRUGS (2)
  1. IMRALDI [Suspect]
     Active Substance: ADALIMUMAB
     Indication: Crohn^s disease
     Dosage: STRENGTH: 40 MG, 398
     Route: 058
     Dates: start: 20210318, end: 20210610
  2. QUESTRAN [Concomitant]
     Active Substance: CHOLESTYRAMINE
     Indication: Bile acid malabsorption
     Dosage: UNKNOWN
     Route: 065
     Dates: start: 20210428

REACTIONS (2)
  - Osteonecrosis of jaw [Recovering/Resolving]
  - Loose tooth [Unknown]

NARRATIVE: CASE EVENT DATE: 20210101
